FAERS Safety Report 5267734-0 (Version None)
Quarter: 2007Q1

REPORT INFORMATION
  Report Type: 
  Country: None (occurrence: None)
  Receive Date: 20070316
  Receipt Date: 20070307
  Transmission Date: 20070707
  Serious: Yes (Hospitalization)
  Sender: FDA-Public Use
  Company Number: GB-PFIZER INC-2007012377

PATIENT
  Age: 39 Year
  Sex: Male

DRUGS (4)
  1. PIROXICAM [Suspect]
     Route: 048
     Dates: start: 20060801, end: 20061116
  2. ATORVASTATIN CALCIUM [Concomitant]
     Indication: HYPERCHOLESTEROLAEMIA
     Dosage: DAILY DOSE:20MG-FREQ:DAILY
     Route: 048
  3. FLUOXETINE [Concomitant]
     Indication: DEPRESSION
     Dosage: DAILY DOSE:40MG
     Route: 048
  4. PROMETHAZINE [Concomitant]
     Indication: LEARNING DISORDER
     Dosage: DAILY DOSE:25MG-FREQ:DAILY
     Route: 048

REACTIONS (6)
  - DIZZINESS [None]
  - GASTRIC ULCER [None]
  - HAEMOGLOBIN DECREASED [None]
  - HELICOBACTER INFECTION [None]
  - HYPERHIDROSIS [None]
  - PALLOR [None]
